FAERS Safety Report 9402574 (Version 2)
Quarter: 2013Q3

REPORT INFORMATION
  Report Type: Spontaneous
  Country: US (occurrence: US)
  Receive Date: 20130716
  Receipt Date: 20130717
  Transmission Date: 20140515
  Serious: Yes (Death, Hospitalization, Other)
  Sender: FDA-Public Use
  Company Number: US-BAYER-2013-083795

PATIENT
  Age: 56 Year
  Sex: Male

DRUGS (1)
  1. BAYER GENUINE ASPIRIN ORIGINAL STRENGTH [Suspect]
     Indication: ISCHAEMIC HEART DISEASE PROPHYLAXIS
     Dosage: 1 DF, QD
     Route: 048

REACTIONS (8)
  - Myocardial infarction [Fatal]
  - Fatigue [Fatal]
  - Musculoskeletal pain [Fatal]
  - Coma [Fatal]
  - Cardiac arrest [Fatal]
  - Epistaxis [None]
  - Brain stem haematoma [None]
  - Brain injury [Fatal]
